FAERS Safety Report 21371163 (Version 4)
Quarter: 2022Q4

REPORT INFORMATION
  Report Type: Report from Study
  Country: AU (occurrence: AU)
  Receive Date: 20220923
  Receipt Date: 20221114
  Transmission Date: 20230113
  Serious: Yes (Hospitalization)
  Sender: FDA-Public Use
  Company Number: AU-BIOVITRUM-2022AU10924

PATIENT
  Age: 71 Year
  Sex: Female

DRUGS (26)
  1. AVATROMBOPAG [Suspect]
     Active Substance: AVATROMBOPAG
     Indication: Aplastic anaemia
     Dates: start: 20220914, end: 20220916
  2. AVATROMBOPAG [Suspect]
     Active Substance: AVATROMBOPAG
     Dates: start: 20220927
  3. POSACONAZOLE [Suspect]
     Active Substance: POSACONAZOLE
     Indication: Antifungal prophylaxis
     Dates: start: 20220915, end: 20220915
  4. POSACONAZOLE [Suspect]
     Active Substance: POSACONAZOLE
     Dates: start: 20220916, end: 20220916
  5. POSACONAZOLE [Suspect]
     Active Substance: POSACONAZOLE
     Dates: start: 20221004
  6. CYCLOSPORINE [Suspect]
     Active Substance: CYCLOSPORINE
     Indication: Prophylaxis
     Dates: start: 20220914, end: 20220915
  7. CYCLOSPORINE [Suspect]
     Active Substance: CYCLOSPORINE
     Dates: start: 20220916, end: 20220916
  8. CYCLOSPORINE [Suspect]
     Active Substance: CYCLOSPORINE
     Dates: start: 20220918, end: 20220918
  9. CYCLOSPORINE [Suspect]
     Active Substance: CYCLOSPORINE
     Dates: start: 20220919, end: 20220919
  10. CYCLOSPORINE [Suspect]
     Active Substance: CYCLOSPORINE
     Dates: start: 20220920, end: 20220920
  11. CYCLOSPORINE [Suspect]
     Active Substance: CYCLOSPORINE
     Dates: start: 20221011
  12. PANTOPRAZOLE [Concomitant]
     Active Substance: PANTOPRAZOLE
     Indication: Dyspepsia
     Dates: start: 20220901
  13. SODIUM BICARBONATE [Concomitant]
     Active Substance: SODIUM BICARBONATE
     Indication: Oral discomfort
     Dates: start: 20220914
  14. SULFAMETHOXAZOLE\TRIMETHOPRIM [Concomitant]
     Active Substance: SULFAMETHOXAZOLE\TRIMETHOPRIM
     Indication: Prophylaxis
     Dosage: BD ON M AND TH
     Dates: start: 20220915
  15. VALACYCLOVIR HYDROCHLORIDE [Concomitant]
     Active Substance: VALACYCLOVIR HYDROCHLORIDE
     Indication: Antiviral prophylaxis
     Dates: start: 20220914
  16. ACETAMINOPHEN [Concomitant]
     Active Substance: ACETAMINOPHEN
     Indication: Pain
     Dosage: PRN(QID)
     Dates: start: 20220914
  17. TEMAZEPAM [Concomitant]
     Active Substance: TEMAZEPAM
     Indication: Sleep disorder
     Dates: start: 20220914
  18. AMLODIPINE [Concomitant]
     Active Substance: AMLODIPINE BESYLATE
     Indication: Hypertension
     Dates: start: 20220918
  19. MAGNESIUM ASPARTATE [Concomitant]
     Active Substance: MAGNESIUM ASPARTATE
     Indication: Hypomagnesaemia
     Dates: start: 20220916
  20. ALUMINUM HYDROXIDE\MAGNESIUM HYDROXIDE\MAGNESIUM TRISILICATE [Concomitant]
     Active Substance: ALUMINUM HYDROXIDE\MAGNESIUM HYDROXIDE\MAGNESIUM TRISILICATE
     Indication: Dyspepsia
     Dates: start: 20220917
  21. POLYETHYLENE GLYCOL 3350 [Concomitant]
     Active Substance: POLYETHYLENE GLYCOL 3350
     Indication: Constipation
     Dates: start: 20220919
  22. PREDNISOLONE [Concomitant]
     Active Substance: PREDNISOLONE
     Indication: Steroid therapy
     Dosage: TAKE 100MG DAILY ON 21-23/09/22 50MG DAILY ON 24- 26/09/22 ?25MG DAILY ON 27- 29/09/22 ?12.5MG DAILY
     Dates: start: 20220921
  23. DOCUSATE-SENNA [Concomitant]
     Dates: start: 2022
  24. TRANEXAMIC ACID [Concomitant]
     Active Substance: TRANEXAMIC ACID
     Indication: Mouth haemorrhage
     Dates: start: 20220927
  25. THYMOCYTE IMMUNE GLOBULIN NOS [Suspect]
     Active Substance: THYMOCYTE IMMUNE GLOBULIN NOS
     Indication: Product used for unknown indication
  26. ACETAMINOPHEN [Concomitant]
     Active Substance: ACETAMINOPHEN
     Indication: Pyrexia

REACTIONS (1)
  - Hepatic enzyme increased [Recovered/Resolved]

NARRATIVE: CASE EVENT DATE: 20220916
